FAERS Safety Report 23111045 (Version 1)
Quarter: 2023Q4

REPORT INFORMATION
  Report Type: Spontaneous
  Country: US (occurrence: US)
  Receive Date: 20231026
  Receipt Date: 20231026
  Transmission Date: 20240110
  Serious: No
  Sender: FDA-Public Use
  Company Number: US-JAZZ PHARMACEUTICALS-2023-US-015971

PATIENT
  Age: 15 Month
  Sex: Female

DRUGS (2)
  1. DEFIBROTIDE SODIUM [Suspect]
     Active Substance: DEFIBROTIDE SODIUM
     Indication: Kawasaki^s disease
     Dosage: 5.5 (RANGE 1-11), QD
  2. DEFIBROTIDE SODIUM [Suspect]
     Active Substance: DEFIBROTIDE SODIUM
     Dosage: 5.5 (RANGE 1-11), QD

REACTIONS (1)
  - Off label use [Unknown]
